FAERS Safety Report 10877280 (Version 2)
Quarter: 2015Q2

REPORT INFORMATION
  Report Type: Report from Study
  Country: AU (occurrence: AU)
  Receive Date: 20150302
  Receipt Date: 20150424
  Transmission Date: 20150821
  Serious: Yes (Other)
  Sender: FDA-Public Use
  Company Number: AU-BAYER-2015-024594

PATIENT
  Age: 82 Year
  Sex: Male

DRUGS (5)
  1. NOTEN [Concomitant]
     Active Substance: ATENOLOL
     Dosage: UNK
     Dates: end: 201502
  2. SIMVASTATIN. [Concomitant]
     Active Substance: SIMVASTATIN
     Dosage: UNK
     Dates: end: 201502
  3. ADEMPAS [Suspect]
     Active Substance: RIOCIGUAT
     Indication: PULMONARY HYPERTENSION
     Dosage: UNK
     Dates: start: 20140701
  4. ADEMPAS [Suspect]
     Active Substance: RIOCIGUAT
     Indication: PULMONARY HYPERTENSION
     Dosage: 2 MG, TID
     Route: 048
     Dates: start: 20140925
  5. TRITACE [Concomitant]
     Active Substance: RAMIPRIL

REACTIONS (1)
  - Circulatory collapse [Recovered/Resolved]
